FAERS Safety Report 6663604-1 (Version None)
Quarter: 2010Q1

REPORT INFORMATION
  Report Type: 
  Country: None (occurrence: None)
  Receive Date: 20100331
  Receipt Date: 20100331
  Transmission Date: 20100710
  Serious: Yes (Other)
  Sender: FDA-Public Use
  Company Number: None

PATIENT
  Sex: Female
  Weight: 55.3388 kg

DRUGS (1)
  1. LEVAQUIN [Suspect]
     Indication: TOOTH ABSCESS
     Dosage: 750 MG DAILY PO
     Route: 048
     Dates: start: 20100327, end: 20100328

REACTIONS (14)
  - AGITATION [None]
  - DECREASED APPETITE [None]
  - DEPRESSED MOOD [None]
  - FATIGUE [None]
  - FEELING OF BODY TEMPERATURE CHANGE [None]
  - FEELING OF DESPAIR [None]
  - HEADACHE [None]
  - PALPITATIONS [None]
  - SLEEP DISORDER [None]
  - THIRST [None]
  - TREMOR [None]
  - VISUAL IMPAIRMENT [None]
  - VOMITING [None]
  - WEIGHT DECREASED [None]
